FAERS Safety Report 24818223 (Version 2)
Quarter: 2025Q1

REPORT INFORMATION
  Report Type: Spontaneous
  Country: US (occurrence: US)
  Receive Date: 20250108
  Receipt Date: 20250123
  Transmission Date: 20250408
  Serious: No
  Sender: ABBVIE
  Company Number: US-ABBVIE-6075022

PATIENT
  Age: 77 Year
  Sex: Male
  Weight: 83.915 kg

DRUGS (18)
  1. LINACLOTIDE [Suspect]
     Active Substance: LINACLOTIDE
     Indication: Irritable bowel syndrome
     Route: 048
     Dates: start: 20250103
  2. LUBIPROSTONE [Suspect]
     Active Substance: LUBIPROSTONE
     Indication: Product used for unknown indication
     Route: 065
  3. BERBERINE [Concomitant]
     Active Substance: BERBERINE
     Indication: Product used for unknown indication
     Dosage: BEFORE MEAL
  4. CAPSICUM\HERBALS [Concomitant]
     Active Substance: CAPSICUM\HERBALS
     Indication: Product used for unknown indication
  5. CINNAMON [Concomitant]
     Active Substance: CINNAMON
     Indication: Product used for unknown indication
  6. CLOVES [Concomitant]
     Active Substance: CLOVE
     Indication: Product used for unknown indication
  7. GINGER [Concomitant]
     Active Substance: GINGER
     Indication: Product used for unknown indication
  8. R-ALPHA LIPOIC ACID [Concomitant]
     Indication: Product used for unknown indication
     Dosage: 1 HOUR BEFORE MEAL (NEUROPATHY)
  9. HERBALS\TURMERIC [Concomitant]
     Active Substance: HERBALS\TURMERIC
     Indication: Product used for unknown indication
  10. CELEXA [Concomitant]
     Active Substance: CITALOPRAM HYDROBROMIDE
     Indication: Product used for unknown indication
     Dosage: REPLACED PAXIL (MARTIN 12/10/22)
  11. COENZYME Q10 [Concomitant]
     Active Substance: DIETARY SUPPLEMENT\UBIDECARENONE
     Indication: Muscle spasms
  12. XYZAL [Concomitant]
     Active Substance: LEVOCETIRIZINE DIHYDROCHLORIDE
     Indication: Product used for unknown indication
  13. CULTURELLE [Concomitant]
     Active Substance: LACTOBACILLUS RHAMNOSUS
     Indication: Product used for unknown indication
  14. GEMTESA [Concomitant]
     Active Substance: VIBEGRON
     Indication: Urinary incontinence
  15. VITAMIN B COMPLEX [Concomitant]
     Active Substance: CYANOCOBALAMIN\DEXPANTHENOL\NIACINAMIDE\PYRIDOXINE HYDROCHLORIDE\RIBOFLAVIN 5^-PHOSPHATE SODIUM\THIA
     Indication: Product used for unknown indication
     Dosage: B1, B2, B3, B5, B6, B7, B9, B12 (} 95% DV)
  16. Vitamin D3/K2 [Concomitant]
     Indication: Vitamin D decreased
  17. MELATONIN [Concomitant]
     Active Substance: MELATONIN
     Indication: Sleep disorder
  18. DITROPAN XL [Concomitant]
     Active Substance: OXYBUTYNIN CHLORIDE
     Indication: Incontinence

REACTIONS (5)
  - Anal incontinence [Unknown]
  - Defaecation urgency [Unknown]
  - Diarrhoea [Unknown]
  - Abdominal distension [Unknown]
  - Flatulence [Unknown]

NARRATIVE: CASE EVENT DATE: 20250101
